FAERS Safety Report 6035347-9 (Version None)
Quarter: 2009Q1

REPORT INFORMATION
  Report Type: 
  Country: None (occurrence: None)
  Receive Date: 20090109
  Receipt Date: 20090109
  Transmission Date: 20090719
  Serious: Yes (Hospitalization)
  Sender: FDA-Public Use
  Company Number: None

PATIENT
  Sex: Female
  Weight: 48.0813 kg

DRUGS (2)
  1. AMLODIPINE [Suspect]
     Indication: HYPERTENSION
     Dosage: 5 MG ONCE DAILY PO
     Route: 048
     Dates: start: 20071211, end: 20080123
  2. ENALAPRIL 10 MG [Suspect]
     Dosage: 10 MG ONCE DAILY PO
     Route: 048
     Dates: start: 20071211, end: 20080123

REACTIONS (3)
  - CONFUSIONAL STATE [None]
  - FEELING ABNORMAL [None]
  - PRODUCT QUALITY ISSUE [None]
